FAERS Safety Report 6079500-7 (Version None)
Quarter: 2009Q1

REPORT INFORMATION
  Report Type: 
  Country: None (occurrence: None)
  Receive Date: 20090216
  Receipt Date: 20090209
  Transmission Date: 20090719
  Serious: Yes (Hospitalization)
  Sender: FDA-Public Use
  Company Number: GB-RANBAXY-2009RR-21722

PATIENT
  Age: 11 Year
  Sex: Male

DRUGS (1)
  1. ACETAMINOPHEN [Suspect]
     Dosage: 500 MG, UNK

REACTIONS (8)
  - AMINO ACID LEVEL DECREASED [None]
  - CONVULSION [None]
  - KETOSIS [None]
  - LACTIC ACIDOSIS [None]
  - PYREXIA [None]
  - RENAL IMPAIRMENT [None]
  - TRANSAMINASES INCREASED [None]
  - VOMITING [None]
